FAERS Safety Report 24332999 (Version 2)
Quarter: 2024Q4

REPORT INFORMATION
  Report Type: Spontaneous
  Country: JP (occurrence: JP)
  Receive Date: 20240918
  Receipt Date: 20241107
  Transmission Date: 20250114
  Serious: Yes (Death, Other)
  Sender: UNITED THERAPEUTICS
  Company Number: JP-UNITED THERAPEUTICS-UNT-2024-029243

PATIENT
  Age: 38 Year
  Sex: Female

DRUGS (1)
  1. TYVASO [Suspect]
     Active Substance: TREPROSTINIL
     Indication: Product used for unknown indication
     Dosage: 36 ?G, QD
     Dates: start: 20240808, end: 202409

REACTIONS (1)
  - Scleroderma [Fatal]

NARRATIVE: CASE EVENT DATE: 20240910
